FAERS Safety Report 11429211 (Version 1)
Quarter: 2015Q3

REPORT INFORMATION
  Report Type: Spontaneous
  Country: US (occurrence: US)
  Receive Date: 20150828
  Receipt Date: 20150828
  Transmission Date: 20151125
  Serious: Yes (Other)
  Sender: FDA-Public Use
  Company Number: US-ROCHE-1222219

PATIENT
  Sex: Male

DRUGS (4)
  1. PEGASYS [Suspect]
     Active Substance: PEGINTERFERON ALFA-2A
     Indication: CHRONIC HEPATITIS C
     Route: 058
     Dates: start: 20130210
  2. RIBASPHERE [Suspect]
     Active Substance: RIBAVIRIN
     Indication: CHRONIC HEPATITIS C
     Dosage: DAILY: 600/600
     Route: 048
     Dates: start: 20130210
  3. BENADRYL [Concomitant]
     Active Substance: DIPHENHYDRAMINE HYDROCHLORIDE
  4. TELAPREVIR [Suspect]
     Active Substance: TELAPREVIR
     Indication: CHRONIC HEPATITIS C
     Route: 048
     Dates: start: 20130210, end: 20130505

REACTIONS (9)
  - Pruritus [Unknown]
  - Dyspnoea [Unknown]
  - Sleep disorder [Unknown]
  - Oral herpes [Unknown]
  - Dizziness [Unknown]
  - Rash [Recovering/Resolving]
  - Chest pain [Unknown]
  - Loss of consciousness [Unknown]
  - Diarrhoea [Unknown]
